FAERS Safety Report 8365030-6 (Version None)
Quarter: 2012Q2

REPORT INFORMATION
  Report Type: 
  Country: None (occurrence: None)
  Receive Date: 20120516
  Receipt Date: 20120327
  Transmission Date: 20120825
  Serious: Yes (Hospitalization)
  Sender: FDA-Public Use
  Company Number: JP-GLAXOSMITHKLINE-B0792411A

PATIENT
  Sex: Female
  Weight: 44 kg

DRUGS (4)
  1. DICLOFENAC SODIUM [Concomitant]
     Indication: PAIN IN EXTREMITY
     Dosage: 50MG PER DAY
     Route: 067
     Dates: end: 20111008
  2. LYRICA [Concomitant]
     Indication: PAIN IN EXTREMITY
     Route: 048
     Dates: start: 20110801, end: 20111008
  3. LOXOPROFEN [Concomitant]
     Indication: PAIN IN EXTREMITY
     Dosage: 120MG PER DAY
     Route: 048
     Dates: end: 20111008
  4. VALTREX [Suspect]
     Indication: HERPES ZOSTER
     Dosage: 3000MG PER DAY
     Route: 048
     Dates: start: 20111004

REACTIONS (9)
  - BLOOD UREA INCREASED [None]
  - DIZZINESS [None]
  - URETERIC DILATATION [None]
  - RENAL FAILURE ACUTE [None]
  - BLOOD POTASSIUM INCREASED [None]
  - PYELOCALIECTASIS [None]
  - DYSLALIA [None]
  - ACIDOSIS [None]
  - BLOOD CREATININE INCREASED [None]
